FAERS Safety Report 11324722 (Version 1)
Quarter: 2015Q3

REPORT INFORMATION
  Report Type: Spontaneous
  Country: US (occurrence: US)
  Receive Date: 20150730
  Receipt Date: 20150730
  Transmission Date: 20151125
  Serious: No
  Sender: FDA-Public Use
  Company Number: US-009507513-1507USA003049

PATIENT
  Sex: Male

DRUGS (1)
  1. PROVENTIL [Suspect]
     Active Substance: ALBUTEROL
     Dosage: 10 PUFF, QD. 1 STANDARD DOSE OF 6.7
     Route: 055
     Dates: start: 2008

REACTIONS (2)
  - Off label use [Unknown]
  - Product packaging quantity issue [Unknown]
